FAERS Safety Report 24889688 (Version 1)
Quarter: 2025Q1

REPORT INFORMATION
  Report Type: Spontaneous
  Country: CN (occurrence: CN)
  Receive Date: 20250127
  Receipt Date: 20250127
  Transmission Date: 20250408
  Serious: Yes (Hospitalization)
  Sender: PFIZER
  Company Number: CN-PFIZER INC-PV202500010110

PATIENT
  Age: 2 Year
  Sex: Female
  Weight: 13 kg

DRUGS (2)
  1. AZITHROMYCIN [Suspect]
     Active Substance: AZITHROMYCIN
     Indication: Mycoplasma infection
     Dosage: 0.100 G, 1X/DAY
     Route: 048
     Dates: start: 20250119, end: 20250120
  2. CHLORPHENAMINE MALEATE/COW BEZOAR/PARACETAMOL [Concomitant]
     Indication: Mycoplasma infection
     Dosage: 2 G, 3X/DAY
     Route: 048
     Dates: start: 20250119, end: 20250121

REACTIONS (6)
  - Vomiting projectile [Recovering/Resolving]
  - Mental status changes [Recovering/Resolving]
  - Cough [Recovering/Resolving]
  - Poor quality sleep [Recovering/Resolving]
  - Decreased appetite [Recovering/Resolving]
  - Off label use [Unknown]

NARRATIVE: CASE EVENT DATE: 20250119
